FAERS Safety Report 16688563 (Version 1)
Quarter: 2019Q3

REPORT INFORMATION
  Report Type: Spontaneous
  Country: US (occurrence: US)
  Receive Date: 20190809
  Receipt Date: 20190809
  Transmission Date: 20191004
  Serious: No
  Sender: FDA-Public Use
  Company Number: US-PURDUE-USA-2019-0146665

PATIENT
  Sex: Male

DRUGS (1)
  1. BUTRANS [Suspect]
     Active Substance: BUPRENORPHINE
     Indication: PAIN
     Dosage: 10 MCG/HR, WEEKLY
     Route: 062
     Dates: start: 201810

REACTIONS (5)
  - Application site pain [Recovered/Resolved]
  - Application site rash [Recovered/Resolved]
  - Device leakage [Recovered/Resolved]
  - Constipation [Recovered/Resolved]
  - Application site discharge [Recovered/Resolved]
